FAERS Safety Report 22151532 (Version 1)
Quarter: 2023Q1

REPORT INFORMATION
  Report Type: Spontaneous
  Country: US (occurrence: US)
  Receive Date: 20230329
  Receipt Date: 20230329
  Transmission Date: 20230417
  Serious: Yes (Other)
  Sender: FDA-Public Use
  Company Number: US-002147023-NVSC2023US068765

PATIENT
  Age: 28 Year
  Sex: Male

DRUGS (2)
  1. MYCOPHENOLATE MOFETIL [Suspect]
     Active Substance: MYCOPHENOLATE MOFETIL
     Indication: C3 glomerulopathy
     Dosage: 1 G, BID
     Route: 065
  2. PREDNISONE [Suspect]
     Active Substance: PREDNISONE
     Indication: C3 glomerulopathy
     Dosage: 60, QD
     Route: 048

REACTIONS (4)
  - C3 glomerulopathy [Unknown]
  - Condition aggravated [Unknown]
  - Therapy non-responder [Unknown]
  - Product use in unapproved indication [Unknown]
